FAERS Safety Report 18206858 (Version 1)
Quarter: 2020Q3

REPORT INFORMATION
  Report Type: Spontaneous
  Country: US (occurrence: US)
  Receive Date: 20200827
  Receipt Date: 20200827
  Transmission Date: 20201103
  Serious: Yes (Hospitalization)
  Sender: FDA-Public Use
  Company Number: None

PATIENT
  Age: 72 Year
  Sex: Male

DRUGS (1)
  1. REVLIMID [Suspect]
     Active Substance: LENALIDOMIDE
     Indication: PLASMA CELL MYELOMA
     Route: 048
     Dates: start: 20200723, end: 20200728

REACTIONS (6)
  - Febrile neutropenia [None]
  - Haemoglobin decreased [None]
  - Pericardial fibrosis [None]
  - Diastolic dysfunction [None]
  - Dyspnoea [None]
  - Pericardial effusion [None]

NARRATIVE: CASE EVENT DATE: 20200728
